FAERS Safety Report 5813100-6 (Version None)
Quarter: 2008Q3

REPORT INFORMATION
  Report Type: 
  Country: None (occurrence: None)
  Receive Date: 20080717
  Receipt Date: 20080116
  Transmission Date: 20090109
  Serious: No
  Sender: FDA-Public Use
  Company Number: A0703446A

PATIENT
  Age: 69 Year
  Sex: Female

DRUGS (2)
  1. NICORETTE [Suspect]
     Dates: start: 20071230
  2. NICORETTE [Suspect]

REACTIONS (3)
  - INTENTIONAL DRUG MISUSE [None]
  - MOUTH ULCERATION [None]
  - ORAL DISCOMFORT [None]
